FAERS Safety Report 15880466 (Version 2)
Quarter: 2019Q2

REPORT INFORMATION
  Report Type: Spontaneous
  Country: US (occurrence: US)
  Receive Date: 20190128
  Receipt Date: 20190530
  Transmission Date: 20190711
  Serious: Yes (Other)
  Sender: FDA-Public Use
  Company Number: US-NOVOPROD-643097

PATIENT
  Age: 36 Year
  Sex: Male
  Weight: 130 kg

DRUGS (6)
  1. LISINOPRIL. [Concomitant]
     Active Substance: LISINOPRIL
     Indication: PRODUCT USED FOR UNKNOWN INDICATION
     Dosage: 10 MG, QD
     Dates: start: 20181106
  2. BYDUREON [Concomitant]
     Active Substance: EXENATIDE
     Dosage: 1 DOSE
     Route: 058
     Dates: start: 201811, end: 201811
  3. OZEMPIC [Suspect]
     Active Substance: SEMAGLUTIDE
     Indication: TYPE 2 DIABETES MELLITUS
     Dosage: 0.25 MG, QW
     Route: 058
     Dates: start: 20181107, end: 20181204
  4. LANTUS [Concomitant]
     Active Substance: INSULIN GLARGINE
     Indication: PRODUCT USED FOR UNKNOWN INDICATION
     Dosage: 15 IU, QD
     Route: 058
     Dates: start: 20181015
  5. BYDUREON [Concomitant]
     Active Substance: EXENATIDE
     Indication: PRODUCT USED FOR UNKNOWN INDICATION
     Dosage: 1 DOSE
     Route: 058
     Dates: start: 20181106, end: 20181106
  6. METFORMIN [Concomitant]
     Active Substance: METFORMIN HYDROCHLORIDE
     Indication: PRODUCT USED FOR UNKNOWN INDICATION
     Dosage: 1000 MG, BID
     Dates: start: 20181011

REACTIONS (3)
  - Suicidal ideation [Recovered/Resolved]
  - Intentional self-injury [Unknown]
  - Depression [Recovered/Resolved]

NARRATIVE: CASE EVENT DATE: 201811
